FAERS Safety Report 7233445-5 (Version None)
Quarter: 2011Q1

REPORT INFORMATION
  Report Type: 
  Country: None (occurrence: None)
  Receive Date: 20110119
  Receipt Date: 20110113
  Transmission Date: 20110831
  Serious: No
  Sender: FDA-Public Use
  Company Number: US-TEVA-263198USA

PATIENT
  Age: 53 Year
  Sex: Female

DRUGS (5)
  1. ACETYLSALICYLIC ACID [Concomitant]
  2. COPAXONE [Suspect]
     Indication: MULTIPLE SCLEROSIS
     Route: 058
  3. MELOXICAM [Concomitant]
  4. ACETYLCARNITINE [Concomitant]
  5. BUPROPION [Concomitant]

REACTIONS (2)
  - PRURITUS [None]
  - FLUSHING [None]
